FAERS Safety Report 11502300 (Version 1)
Quarter: 2015Q3

REPORT INFORMATION
  Report Type: Spontaneous
  Country: US (occurrence: US)
  Receive Date: 20150914
  Receipt Date: 20150914
  Transmission Date: 20151125
  Serious: Yes (Other)
  Sender: FDA-Public Use
  Company Number: US-CELGENEUS-USA-2015076840

PATIENT
  Age: 83 Year
  Sex: Male
  Weight: 62.65 kg

DRUGS (6)
  1. REVLIMID [Suspect]
     Active Substance: LENALIDOMIDE
     Dosage: 20MG-10MG
     Route: 048
     Dates: start: 201110
  2. REVLIMID [Suspect]
     Active Substance: LENALIDOMIDE
     Dosage: 20MG-10MG
     Route: 048
     Dates: start: 200903
  3. REVLIMID [Suspect]
     Active Substance: LENALIDOMIDE
     Indication: PLASMA CELL MYELOMA
     Route: 048
     Dates: start: 200608
  4. REVLIMID [Suspect]
     Active Substance: LENALIDOMIDE
     Dosage: 20MG-10MG
     Route: 048
     Dates: start: 201002
  5. REVLIMID [Suspect]
     Active Substance: LENALIDOMIDE
     Route: 048
     Dates: start: 20100128
  6. REVLIMID [Suspect]
     Active Substance: LENALIDOMIDE
     Route: 048
     Dates: start: 201311

REACTIONS (2)
  - Staphylococcal infection [Unknown]
  - Wound infection [Not Recovered/Not Resolved]

NARRATIVE: CASE EVENT DATE: 20150701
